FAERS Safety Report 8198422-9 (Version None)
Quarter: 2012Q1

REPORT INFORMATION
  Report Type: 
  Country: None (occurrence: None)
  Receive Date: 20120309
  Receipt Date: 20120305
  Transmission Date: 20120608
  Serious: Yes (Hospitalization)
  Sender: FDA-Public Use
  Company Number: PHHO2010DE03269

PATIENT
  Sex: Female
  Weight: 60 kg

DRUGS (10)
  1. EPIRUBICIN [Suspect]
     Dosage: UNK
     Route: 042
     Dates: start: 20100212
  2. EMEND [Concomitant]
  3. NO TREATMENT RECEIVED [Suspect]
     Dosage: NOT TREATMENT
  4. CIPROFLOXACIN [Concomitant]
  5. CYCLOPHOSPHAMIDE [Suspect]
     Dosage: UNK
     Route: 042
     Dates: start: 20100212
  6. GRANISETRON HYDROCHLORIDE [Concomitant]
     Dosage: UNK
  7. NEULASTA [Concomitant]
  8. DOCETAXEL [Suspect]
     Dosage: UNK
     Route: 042
     Dates: start: 20100212
  9. DEXAMETHASONE [Concomitant]
  10. MESNA [Concomitant]

REACTIONS (2)
  - LEUKOPENIA [None]
  - GENERAL PHYSICAL HEALTH DETERIORATION [None]
